FAERS Safety Report 24328614 (Version 1)
Quarter: 2024Q3

REPORT INFORMATION
  Report Type: Spontaneous
  Country: US (occurrence: US)
  Receive Date: 20240917
  Receipt Date: 20240917
  Transmission Date: 20241016
  Serious: No
  Sender: ALKERMES
  Company Number: US-ALKERMES INC.-ALK-2024-002333

PATIENT
  Age: 53 Year
  Sex: Male

DRUGS (2)
  1. VIVITROL [Suspect]
     Active Substance: NALTREXONE
     Indication: Alcoholism
     Dosage: 380 MILLIGRAM, Q3WK
     Route: 030
     Dates: start: 202409
  2. VIVITROL [Suspect]
     Active Substance: NALTREXONE
     Dosage: 380 MILLIGRAM, QMO
     Route: 030
     Dates: start: 202408

REACTIONS (3)
  - Off label use [Unknown]
  - Therapeutic response shortened [Unknown]
  - Alcohol withdrawal syndrome [Unknown]

NARRATIVE: CASE EVENT DATE: 20240901
